FAERS Safety Report 15562683 (Version 1)
Quarter: 2018Q4

REPORT INFORMATION
  Report Type: Report from Study
  Country: CO (occurrence: CO)
  Receive Date: 20181029
  Receipt Date: 20181029
  Transmission Date: 20190205
  Serious: Yes (Death, Hospitalization)
  Sender: FDA-Public Use
  Company Number: CO-JNJFOC-20180844384

PATIENT
  Age: 84 Year
  Sex: Female
  Weight: 60 kg

DRUGS (1)
  1. SIMPONI [Suspect]
     Active Substance: GOLIMUMAB
     Indication: RHEUMATOID ARTHRITIS
     Route: 058
     Dates: start: 20160524, end: 20180301

REACTIONS (7)
  - Gastric ulcer perforation [Fatal]
  - Decreased appetite [Not Recovered/Not Resolved]
  - Vomiting [Recovering/Resolving]
  - Dizziness [Unknown]
  - Haematochezia [Recovering/Resolving]
  - Multiple fractures [Not Recovered/Not Resolved]
  - Fall [Fatal]

NARRATIVE: CASE EVENT DATE: 2018
